FAERS Safety Report 15275573 (Version 2)
Quarter: 2018Q3

REPORT INFORMATION
  Report Type: Spontaneous
  Country: DE (occurrence: DE)
  Receive Date: 20180814
  Receipt Date: 20180814
  Transmission Date: 20181010
  Serious: Yes (Congenital Anomaly, Other)
  Sender: FDA-Public Use
  Company Number: DE-CONCORDIA PHARMACEUTICALS INC.-E2B_00015983

PATIENT
  Age: 1 Day
  Sex: Female
  Weight: .99 kg

DRUGS (3)
  1. L?THYROXIN [Concomitant]
     Active Substance: LEVOTHYROXINE SODIUM
     Indication: HYPOTHYROIDISM
     Route: 064
  2. AZATHIOPRINE. [Suspect]
     Active Substance: AZATHIOPRINE
     Indication: RHEUMATOID ARTHRITIS
     Dosage: 200 [MG/D ]
     Route: 064
     Dates: start: 20170212, end: 20170907
  3. PREDNISOLONE. [Suspect]
     Active Substance: PREDNISOLONE
     Indication: RHEUMATOID ARTHRITIS
     Dosage: 15 [MG/D ]
     Route: 064
     Dates: start: 20170212, end: 20170907

REACTIONS (5)
  - Hydrops foetalis [Recovered/Resolved]
  - Pericardial effusion [Recovered/Resolved]
  - Atrial septal defect [Not Recovered/Not Resolved]
  - Pancytopenia [Recovered/Resolved]
  - Patent ductus arteriosus [Recovered/Resolved]

NARRATIVE: CASE EVENT DATE: 20170907
